FAERS Safety Report 4539478-1 (Version None)
Quarter: 2004Q4

REPORT INFORMATION
  Report Type: 
  Country: None (occurrence: None)
  Receive Date: 20041228
  Receipt Date: 20041218
  Transmission Date: 20050328
  Serious: Yes (Hospitalization)
  Sender: FDA-Public Use
  Company Number: 200419713US

PATIENT
  Age: 71 Year
  Sex: Male

DRUGS (7)
  1. LANTUS [Suspect]
     Indication: DIABETES MELLITUS NON-INSULIN-DEPENDENT
     Dosage: DOSE UNIT: UNITS
     Route: 058
  2. HUMALOG [Concomitant]
     Dosage: DOSE: UNK
  3. COREG [Concomitant]
     Dosage: DOSE: UNK
  4. ADVICOR - SLOW RELEASE [Concomitant]
     Dosage: DOSE: UNK
  5. NIASPAN [Concomitant]
     Dosage: DOSE: UNK
  6. FOLIC ACID [Concomitant]
     Dosage: DOSE: UNK
  7. INVANZ [Concomitant]
     Route: 042

REACTIONS (2)
  - BLOOD GLUCOSE INCREASED [None]
  - DIABETIC ULCER [None]
